FAERS Safety Report 7002653-0 (Version None)
Quarter: 2010Q3

REPORT INFORMATION
  Report Type: 
  Country: None (occurrence: None)
  Receive Date: 20100920
  Receipt Date: 20100908
  Transmission Date: 20110219
  Serious: Yes (Other)
  Sender: FDA-Public Use
  Company Number: GB-PFIZER INC-2010097883

PATIENT
  Age: 72 Year
  Sex: Male

DRUGS (4)
  1. SUTENT [Suspect]
     Indication: RENAL CANCER
     Dosage: 50 MG, 1X/DAY
     Route: 048
     Dates: start: 20091027
  2. METFORMIN [Concomitant]
     Indication: TYPE 2 DIABETES MELLITUS
  3. PHENOXYMETHYLPENICILLIN POTASSIUM [Concomitant]
     Indication: SPLENECTOMY
  4. PRAVASTATIN [Concomitant]
     Indication: BLOOD CHOLESTEROL

REACTIONS (4)
  - BLISTER [None]
  - BLOOD PRESSURE INCREASED [None]
  - FATIGUE [None]
  - PERIORBITAL OEDEMA [None]
